FAERS Safety Report 16209551 (Version 2)
Quarter: 2019Q2

REPORT INFORMATION
  Report Type: Spontaneous
  Country: ES (occurrence: ES)
  Receive Date: 20190417
  Receipt Date: 20190419
  Transmission Date: 20190711
  Serious: Yes (Other)
  Sender: FDA-Public Use
  Company Number: ES-ANIPHARMA-2019-ES-000020

PATIENT
  Age: 61 Year
  Sex: Female

DRUGS (16)
  1. FROVATRIPTAN. [Concomitant]
     Active Substance: FROVATRIPTAN
     Dosage: 2.5 MG QOD
     Route: 048
  2. ELETRIPTAN. [Concomitant]
     Active Substance: ELETRIPTAN
     Dosage: 80 MG Q72H
     Route: 048
  3. IBUPROFEN. [Concomitant]
     Active Substance: IBUPROFEN
     Dosage: UNK
     Route: 065
  4. BOTULINUM TOXIN TYPE A [Suspect]
     Active Substance: BOTULINUM TOXIN TYPE A
     Dosage: 195 DF UNK
     Route: 065
  5. TOPIRAMATE. [Suspect]
     Active Substance: TOPIRAMATE
     Route: 065
  6. ZONISAMIDE. [Suspect]
     Active Substance: ZONISAMIDE
     Route: 065
  7. OMEPRAZOLE. [Concomitant]
     Active Substance: OMEPRAZOLE
     Route: 065
  8. NAPROXEN. [Concomitant]
     Active Substance: NAPROXEN
     Dosage: 550 MG DAILY
     Route: 048
  9. VALPROATE BISMUTH [Concomitant]
     Active Substance: VALPROATE BISMUTH
     Route: 065
  10. DEXKETOPROFEN [Concomitant]
     Active Substance: DEXKETOPROFEN
     Route: 065
  11. OLANZAPINE. [Suspect]
     Active Substance: OLANZAPINE
     Route: 065
  12. CANDESARTAN CILEXETIL. [Suspect]
     Active Substance: CANDESARTAN CILEXETIL
     Indication: MIGRAINE WITHOUT AURA
     Dosage: 16 MG DAILY
     Route: 048
  13. QUETIAPINE. [Suspect]
     Active Substance: QUETIAPINE
     Dosage: UNK
     Route: 048
  14. SUMATRIPTAN. [Suspect]
     Active Substance: SUMATRIPTAN
     Route: 065
  15. VENLAFAXINE [Concomitant]
     Active Substance: VENLAFAXINE HYDROCHLORIDE
     Route: 065
  16. LISINOPRIL. [Concomitant]
     Active Substance: LISINOPRIL
     Route: 065

REACTIONS (9)
  - Drug ineffective [Unknown]
  - Migraine [Unknown]
  - Depression [Unknown]
  - Condition aggravated [Unknown]
  - Lichen planus [Unknown]
  - Product use in unapproved indication [Unknown]
  - Pain [Unknown]
  - Seizure [Unknown]
  - Cognitive disorder [Unknown]
